FAERS Safety Report 7921713-0 (Version None)
Quarter: 2011Q4

REPORT INFORMATION
  Report Type: 
  Country: None (occurrence: None)
  Receive Date: 20111117
  Receipt Date: 20111110
  Transmission Date: 20120403
  Serious: Yes (Hospitalization)
  Sender: FDA-Public Use
  Company Number: US-GLAXOSMITHKLINE-A0932370A

PATIENT
  Age: 60 Year
  Sex: Male
  Weight: 133.2 kg

DRUGS (1)
  1. AVANDIA [Suspect]
     Indication: DIABETES MELLITUS
     Route: 048
     Dates: start: 20020222, end: 20070101

REACTIONS (3)
  - CORONARY ARTERY DISEASE [None]
  - HEART RATE IRREGULAR [None]
  - ATRIAL FIBRILLATION [None]
